FAERS Safety Report 16781688 (Version 1)
Quarter: 2019Q4

REPORT INFORMATION
  Report Type: Spontaneous
  Country: US (occurrence: US)
  Receive Date: 20190906
  Receipt Date: 20190906
  Transmission Date: 20200122
  Serious: No
  Sender: FDA-Public Use
  Company Number: None

PATIENT
  Age: 59 Year
  Sex: Female

DRUGS (3)
  1. PLAVIX [Concomitant]
     Active Substance: CLOPIDOGREL BISULFATE
  2. METOPROLOL SUCCINATE. [Suspect]
     Active Substance: METOPROLOL SUCCINATE
     Route: 048
  3. SIMVASTATIN 20MG [Concomitant]
     Active Substance: SIMVASTATIN

REACTIONS (3)
  - Product substitution issue [None]
  - Palpitations [None]
  - Fatigue [None]

NARRATIVE: CASE EVENT DATE: 20190801
